FAERS Safety Report 8828024 (Version 1)
Quarter: 2012Q4

REPORT INFORMATION
  Report Type: Report from Study
  Country: US (occurrence: US)
  Receive Date: 20121005
  Receipt Date: 20121005
  Transmission Date: 20130627
  Serious: Yes (Hospitalization)
  Sender: FDA-Public Use
  Company Number: US-US-EMD SERONO, INC.-7164837

PATIENT
  Age: 52 None
  Sex: Female
  Weight: 77 kg

DRUGS (3)
  1. REBIF [Suspect]
     Indication: MULTIPLE SCLEROSIS
     Route: 058
     Dates: start: 20120622
  2. CARVEDILOL [Concomitant]
     Indication: PALPITATIONS
  3. AMANTADINE [Concomitant]
     Indication: ANTIVIRAL TREATMENT

REACTIONS (7)
  - Bronchitis [Recovered/Resolved]
  - Asthma [Unknown]
  - Multiple sclerosis relapse [Unknown]
  - Upper respiratory tract infection [Not Recovered/Not Resolved]
  - Feeling abnormal [Unknown]
  - Pain [Unknown]
  - Injection site pain [Unknown]
